FAERS Safety Report 4923289-9 (Version None)
Quarter: 2006Q1

REPORT INFORMATION
  Report Type: 
  Country: None (occurrence: None)
  Receive Date: 20060227
  Receipt Date: 20060214
  Transmission Date: 20060701
  Serious: Yes (Hospitalization)
  Sender: FDA-Public Use
  Company Number: IT-JNJFOC-20060103214

PATIENT
  Sex: Female
  Weight: 85 kg

DRUGS (9)
  1. REOPRO [Suspect]
     Dosage: ABCIXIMAB INFUSION 04.0 ML IN 40 ML OF DILUENT 4.7 ML ADMINISTERED
     Route: 042
  2. REOPRO [Suspect]
     Indication: ACUTE MYOCARDIAL INFARCTION
     Route: 042
  3. RETEPLASE [Suspect]
     Indication: ACUTE MYOCARDIAL INFARCTION
     Route: 042
  4. ASPIRIN [Concomitant]
  5. ACE INHIBITOR [Concomitant]
  6. BETA BLOCKERS [Concomitant]
  7. DIURETICS [Concomitant]
  8. CLOPIDOGREL [Concomitant]
  9. TICLOPIDINE HCL [Concomitant]

REACTIONS (2)
  - CARDIAC FAILURE CONGESTIVE [None]
  - CORONARY ARTERY STENOSIS [None]
